FAERS Safety Report 7998311-6 (Version None)
Quarter: 2011Q4

REPORT INFORMATION
  Report Type: 
  Country: None (occurrence: None)
  Receive Date: 20111221
  Receipt Date: 20110701
  Transmission Date: 20120403
  Serious: No
  Sender: FDA-Public Use
  Company Number: US-GLAXOSMITHKLINE-A0934774A

PATIENT
  Age: 59 Year
  Sex: Female

DRUGS (2)
  1. LOVAZA [Suspect]
     Indication: BLOOD TRIGLYCERIDES
     Dosage: 1CAP TWICE PER DAY
     Route: 048
     Dates: start: 20090101, end: 20101101
  2. SIMVASTATIN [Concomitant]

REACTIONS (1)
  - DIARRHOEA [None]
